FAERS Safety Report 5168731-6 (Version None)
Quarter: 2006Q4

REPORT INFORMATION
  Report Type: 
  Country: None (occurrence: None)
  Receive Date: 20061211
  Receipt Date: 20061201
  Transmission Date: 20070319
  Serious: Yes (Other)
  Sender: FDA-Public Use
  Company Number: US-JNJFOC-20061200902

PATIENT
  Sex: Male

DRUGS (11)
  1. INFLIXIMAB [Suspect]
     Indication: RHEUMATOID ARTHRITIS
     Route: 042
  2. HYDROCHLOROTHIAZIDE [Concomitant]
  3. IBUPROFEN [Concomitant]
  4. IMODIUM [Concomitant]
  5. VITAMIN CAP [Concomitant]
  6. NORVASC [Concomitant]
  7. PLAQUENIL [Concomitant]
  8. PREDNISONE TAB [Concomitant]
  9. COSOPT [Concomitant]
  10. PREDNISONE TAB [Concomitant]
     Indication: MYELODYSPLASTIC SYNDROME
  11. PROCRIT [Concomitant]
     Indication: MYELODYSPLASTIC SYNDROME

REACTIONS (1)
  - SQUAMOUS CELL CARCINOMA [None]
